FAERS Safety Report 9366263 (Version 1)
Quarter: 2013Q2

REPORT INFORMATION
  Report Type: Spontaneous
  Country: US (occurrence: US)
  Receive Date: 20130625
  Receipt Date: 20130625
  Transmission Date: 20140414
  Serious: No
  Sender: FDA-Public Use
  Company Number: US-GLAXOSMITHKLINE-A0976980A

PATIENT
  Age: 74 Year
  Sex: Male

DRUGS (5)
  1. VERAMYST [Suspect]
     Indication: MULTIPLE ALLERGIES
     Dosage: 1SPR PER DAY
     Route: 045
     Dates: start: 2009
  2. PREDNISONE [Concomitant]
  3. LANTUS [Concomitant]
  4. APIDRA [Concomitant]
  5. QUINAPRIL [Concomitant]

REACTIONS (2)
  - Drug ineffective [Not Recovered/Not Resolved]
  - Product quality issue [Unknown]
